FAERS Safety Report 11630245 (Version 1)
Quarter: 2015Q4

REPORT INFORMATION
  Report Type: Spontaneous
  Country: BR (occurrence: BR)
  Receive Date: 20151014
  Receipt Date: 20151014
  Transmission Date: 20160304
  Serious: Yes (Disabling, Other)
  Sender: FDA-Public Use
  Company Number: BR-JNJFOC-20151009995

PATIENT
  Age: 91 Year
  Sex: Female
  Weight: 40 kg

DRUGS (2)
  1. HALDOL [Suspect]
     Active Substance: HALOPERIDOL
     Indication: PRODUCT USED FOR UNKNOWN INDICATION
     Route: 030
     Dates: start: 20150928
  2. HALDOL [Suspect]
     Active Substance: HALOPERIDOL
     Indication: INSOMNIA
     Dosage: HALF TABLET OF 5 MG
     Route: 048
     Dates: start: 20150924, end: 20150928

REACTIONS (18)
  - Movement disorder [Not Recovered/Not Resolved]
  - Lung disorder [Not Recovered/Not Resolved]
  - Urinary tract infection [Not Recovered/Not Resolved]
  - Cardiomegaly [Not Recovered/Not Resolved]
  - Venous occlusion [Not Recovered/Not Resolved]
  - Bedridden [Not Recovered/Not Resolved]
  - Weight decreased [Not Recovered/Not Resolved]
  - Wheezing [None]
  - Wrong technique in product usage process [None]
  - Musculoskeletal stiffness [None]
  - Product use issue [None]
  - Atrophy [Not Recovered/Not Resolved]
  - Trismus [Not Recovered/Not Resolved]
  - Off label use [None]
  - Exophthalmos [Not Recovered/Not Resolved]
  - Abasia [None]
  - Hypersomnia [Not Recovered/Not Resolved]
  - Somnolence [None]

NARRATIVE: CASE EVENT DATE: 201509
